FAERS Safety Report 10760777 (Version 4)
Quarter: 2015Q1

REPORT INFORMATION
  Report Type: Spontaneous
  Country: US (occurrence: US)
  Receive Date: 20150204
  Receipt Date: 20150223
  Transmission Date: 20150721
  Serious: No
  Sender: FDA-Public Use
  Company Number: US-AMGEN-USASP2015009690

PATIENT
  Age: 17 Year
  Sex: Female
  Weight: 59 kg

DRUGS (3)
  1. ENBREL [Suspect]
     Active Substance: ETANERCEPT
     Indication: ANKYLOSING SPONDYLITIS
     Dosage: 50 MG WEEKLY
     Route: 058
     Dates: start: 20140716
  2. SULFASALAZINE. [Concomitant]
     Active Substance: SULFASALAZINE
     Indication: SPONDYLOARTHROPATHY
     Dosage: 500 UNK, BID
     Route: 048
     Dates: start: 20140314
  3. CLOBETASOL [Concomitant]
     Active Substance: CLOBETASOL
     Dosage: UNK

REACTIONS (7)
  - Pyrexia [Not Recovered/Not Resolved]
  - Oropharyngeal pain [Not Recovered/Not Resolved]
  - Fatigue [Not Recovered/Not Resolved]
  - Cough [Not Recovered/Not Resolved]
  - Nasal congestion [Not Recovered/Not Resolved]
  - Rhinorrhoea [Not Recovered/Not Resolved]
  - Injection site pain [Not Recovered/Not Resolved]

NARRATIVE: CASE EVENT DATE: 201407
